FAERS Safety Report 5104024-0 (Version None)
Quarter: 2006Q3

REPORT INFORMATION
  Report Type: 
  Country: None (occurrence: None)
  Receive Date: 20060911
  Receipt Date: 20060830
  Transmission Date: 20061208
  Serious: Yes (Other)
  Sender: FDA-Public Use
  Company Number: 2006104641

PATIENT
  Age: 61 Year
  Sex: Female
  Weight: 60 kg

DRUGS (5)
  1. TOLTERODINE TARTRATE [Suspect]
     Indication: ABDOMINAL DISCOMFORT
     Dosage: 4 MG (4 MG,1 IN 1 D), ORAL
     Route: 048
     Dates: start: 20060804, end: 20060816
  2. TOLTERODINE TARTRATE [Suspect]
     Indication: POLLAKIURIA
     Dosage: 4 MG (4 MG,1 IN 1 D), ORAL
     Route: 048
     Dates: start: 20060804, end: 20060816
  3. CHOREITOU (HERBAL EXTRACTS NOS) [Suspect]
     Indication: ABDOMINAL DISCOMFORT
     Dosage: 7.5 GRAM (2.5 GRAM, 3 IN 1 D), ORAL
     Route: 048
     Dates: start: 20060804, end: 20060808
  4. CHOREITOU (HERBAL EXTRACTS NOS) [Suspect]
     Indication: POLLAKIURIA
     Dosage: 7.5 GRAM (2.5 GRAM, 3 IN 1 D), ORAL
     Route: 048
     Dates: start: 20060804, end: 20060808
  5. LAMISIL [Suspect]
     Indication: DRUG USE FOR UNKNOWN INDICATION
     Dosage: ORAL
     Route: 048
     Dates: start: 20060724

REACTIONS (7)
  - ALANINE AMINOTRANSFERASE INCREASED [None]
  - ASPARTATE AMINOTRANSFERASE INCREASED [None]
  - CHOLELITHIASIS [None]
  - GAMMA-GLUTAMYLTRANSFERASE INCREASED [None]
  - HOT FLUSH [None]
  - LIVER DISORDER [None]
  - MALAISE [None]
